FAERS Safety Report 6149647-5 (Version None)
Quarter: 2009Q2

REPORT INFORMATION
  Report Type: 
  Country: None (occurrence: None)
  Receive Date: 20090409
  Receipt Date: 20090331
  Transmission Date: 20091009
  Serious: Yes (Other)
  Sender: FDA-Public Use
  Company Number: US-AVENTIS-200912812US

PATIENT
  Age: 77 Year
  Sex: Female

DRUGS (3)
  1. LOVENOX [Suspect]
     Indication: ORTHODONTIC PROCEDURE
     Dates: start: 20090101
  2. LOVENOX [Suspect]
     Indication: ANGIOGRAM
     Dates: start: 20090101
  3. COUMADIN [Suspect]
     Dosage: DOSE: UNK

REACTIONS (3)
  - BLOOD CREATININE INCREASED [None]
  - GINGIVAL BLEEDING [None]
  - RENAL FAILURE [None]
